FAERS Safety Report 7957066-1 (Version None)
Quarter: 2011Q4

REPORT INFORMATION
  Report Type: 
  Country: None (occurrence: None)
  Receive Date: 20111205
  Receipt Date: 20111125
  Transmission Date: 20120403
  Serious: Yes (Hospitalization, Other)
  Sender: FDA-Public Use
  Company Number: US-BAYER-2011-027216

PATIENT
  Age: 35 Year
  Sex: Female
  Weight: 74.83 kg

DRUGS (15)
  1. PRILOSEC [Concomitant]
  2. YASMIN [Suspect]
     Dosage: UNK
     Route: 048
     Dates: start: 20060701, end: 20101001
  3. YASMIN [Suspect]
     Indication: PREMENSTRUAL SYNDROME
     Dosage: UNK
     Route: 048
     Dates: start: 20060701, end: 20080901
  4. IBUPROFEN [Concomitant]
     Dosage: UNK UNK, PRN
     Dates: start: 20010101
  5. SUCRALFATE [Concomitant]
     Dosage: 1 G, UNK
     Dates: start: 20071130, end: 20071204
  6. PEPTO [Concomitant]
  7. ZEGERID [Concomitant]
  8. YAZ [Suspect]
     Indication: CONTRACEPTION
     Dosage: UNK
     Route: 048
     Dates: start: 20060501, end: 20060601
  9. PREVACID [Concomitant]
  10. YAZ [Suspect]
     Indication: PREMENSTRUAL SYNDROME
  11. DROSPIRENONE AND ETHINYL ESTRADIOL [Suspect]
     Indication: CONTRACEPTION
     Dosage: UNK
     Route: 048
     Dates: start: 20081201
  12. DROSPIRENONE AND ETHINYL ESTRADIOL [Suspect]
     Indication: PREMENSTRUAL SYNDROME
     Dosage: UNK
     Route: 048
     Dates: start: 20090301
  13. YASMIN [Suspect]
     Indication: CONTRACEPTION
     Dosage: UNK
     Route: 048
     Dates: start: 20030801, end: 20060401
  14. ALLI [Concomitant]
  15. PEPCID [Concomitant]

REACTIONS (7)
  - FEAR [None]
  - BILE DUCT STONE [None]
  - GALLBLADDER DISORDER [None]
  - PAIN [None]
  - CHOLECYSTITIS CHRONIC [None]
  - CHOLELITHIASIS [None]
  - ABDOMINAL PAIN UPPER [None]
